FAERS Safety Report 7509218-2 (Version None)
Quarter: 2011Q2

REPORT INFORMATION
  Report Type: 
  Country: None (occurrence: None)
  Receive Date: 20110519
  Receipt Date: 20110504
  Transmission Date: 20111010
  Serious: Yes (Other)
  Sender: FDA-Public Use
  Company Number: 2011MA005420

PATIENT
  Age: 34 Year
  Sex: Female

DRUGS (2)
  1. PROPYLTHIOURACIL TAB [Suspect]
     Indication: THYROIDITIS
     Dosage: 100 MG; QD
  2. PROPRANOLOL [Concomitant]

REACTIONS (1)
  - DRUG RASH WITH EOSINOPHILIA AND SYSTEMIC SYMPTOMS [None]
